FAERS Safety Report 9207055 (Version 1)
Quarter: 2013Q1

REPORT INFORMATION
  Report Type: Spontaneous
  Country: US (occurrence: None)
  Receive Date: 20120731
  Receipt Date: 20120731
  Transmission Date: 20140127
  Serious: No
  Sender: FDA-Public Use
  Company Number: 2012MZ000323

PATIENT
  Age: 67 Year
  Sex: Female
  Weight: 60.78 kg

DRUGS (3)
  1. XEOMIN [Suspect]
     Indication: SKIN WRINKLING
     Dates: start: 20120428, end: 20120428
  2. XEOMIN [Suspect]
     Indication: SKIN WRINKLING
     Dates: start: 20120428, end: 20120428
  3. ATENOLOL [Concomitant]

REACTIONS (3)
  - Eyelid ptosis [None]
  - Vision blurred [None]
  - Off label use [None]
